FAERS Safety Report 25396360 (Version 1)
Quarter: 2025Q2

REPORT INFORMATION
  Report Type: Spontaneous
  Country: US (occurrence: None)
  Receive Date: 20250603
  Receipt Date: 20250603
  Transmission Date: 20250717
  Serious: Yes (Life-Threatening, Hospitalization, Disabling)
  Sender: FDA-CTU
  Company Number: None

PATIENT
  Age: 31 Year
  Sex: Female
  Weight: 72 kg

DRUGS (1)
  1. PAXIL [Suspect]
     Active Substance: PAROXETINE HYDROCHLORIDE

REACTIONS (5)
  - Suicidal ideation [None]
  - Withdrawal syndrome [None]
  - Loss of employment [None]
  - Emotional disorder [None]
  - Economic problem [None]

NARRATIVE: CASE EVENT DATE: 20210820
